FAERS Safety Report 19388013 (Version 1)
Quarter: 2021Q2

REPORT INFORMATION
  Report Type: Spontaneous
  Country: US (occurrence: US)
  Receive Date: 20210607
  Receipt Date: 20210607
  Transmission Date: 20210717
  Serious: Yes (Other)
  Sender: FDA-Public Use
  Company Number: None

PATIENT
  Age: 69 Year
  Sex: Male
  Weight: 93.6 kg

DRUGS (17)
  1. ZYRTEC 10 MG QD PRN [Concomitant]
  2. QUETIAPINE 25 MG QHS [Concomitant]
  3. SIMVASTATIN 20 MG QHS [Concomitant]
  4. VITAMIN C 1,000 QD [Concomitant]
  5. IPRATROPIUM BROMIDE 0.02 % INH SOL; 1 VIA NEB QID [Concomitant]
  6. MELATOININ 10MG ? QD [Concomitant]
  7. LISINOPRIL 40 MG QD [Concomitant]
  8. SYMBICORT 160MCG/4.5MCG ? 2 PUFFS BID [Concomitant]
  9. NUPLAZID [Suspect]
     Active Substance: PIMAVANSERIN TARTRATE
     Indication: DEMENTIA
     Route: 048
     Dates: start: 20200831, end: 20210602
  10. ALBUTEROL SULFATE (2.5 MG/3ML) 0.083% NEB SOL 1 VIA NEB QID PRN [Concomitant]
  11. VENTOLIN HFA ? 1 TO 2 Q 4?6PRN [Concomitant]
  12. NUPLAZID [Suspect]
     Active Substance: PIMAVANSERIN TARTRATE
     Indication: PARKINSON^S DISEASE
     Route: 048
     Dates: start: 20200831, end: 20210602
  13. VITAMIN D 5,000 IU QD [Concomitant]
  14. AMLODIPINE 5MG TO 10MG PRN [Concomitant]
  15. ASPIRIN 81 MG QD [Concomitant]
  16. DONEPEZIL HCL 10 MG QD [Concomitant]
  17. ZINC GLUCONATE 50MG QD [Concomitant]

REACTIONS (2)
  - Therapy cessation [None]
  - Agitation [None]

NARRATIVE: CASE EVENT DATE: 20210602
